FAERS Safety Report 13704574 (Version 3)
Quarter: 2020Q3

REPORT INFORMATION
  Report Type: Report from Study
  Country: US (occurrence: US)
  Receive Date: 20170630
  Receipt Date: 20170710
  Transmission Date: 20201104
  Serious: No
  Sender: FDA-Public Use
  Company Number: US-ROCHE-1955398

PATIENT
  Age: 77 Year
  Sex: Male
  Weight: 72 kg

DRUGS (16)
  1. MAGNESIUM SULFATE. [Concomitant]
     Active Substance: MAGNESIUM SULFATE
     Indication: PROPHYLAXIS
     Route: 042
     Dates: start: 20170429, end: 20170503
  2. ALLOPURINOL. [Concomitant]
     Active Substance: ALLOPURINOL
     Indication: PROPHYLAXIS
     Route: 048
     Dates: start: 20170425, end: 20170526
  3. SALINE [Concomitant]
     Active Substance: SODIUM CHLORIDE
     Route: 065
     Dates: start: 20170526
  4. ALUMINUM MAGNESIUM HYDROXIDE [Concomitant]
     Indication: DYSPEPSIA
     Route: 048
     Dates: start: 20170428, end: 20170503
  5. HEPARIN FLUSH [Concomitant]
     Active Substance: HEPARIN SODIUM
     Route: 065
     Dates: start: 20170503, end: 20170503
  6. FILGRASTIM [Concomitant]
     Active Substance: FILGRASTIM
     Indication: NEUTROPHIL COUNT DECREASED
     Dosage: FILGRASTIM?SNDZ
     Route: 058
     Dates: start: 20170526, end: 20170526
  7. FILGRASTIM [Concomitant]
     Active Substance: FILGRASTIM
     Dosage: FILGRASTIM?SNDZ
     Route: 058
     Dates: start: 20170601, end: 20170601
  8. FILGRASTIM [Concomitant]
     Active Substance: FILGRASTIM
     Dosage: FILGRASTIM?SNDZ
     Route: 058
     Dates: start: 20170603, end: 20170603
  9. VENETOCLAX. [Suspect]
     Active Substance: VENETOCLAX
     Indication: ACUTE MYELOID LEUKAEMIA
     Dosage: MOST RECENT DOSE OF VENETOCLAX ONSET ON 18/MAY/2017 600 MG
     Route: 048
     Dates: start: 20170428
  10. ALUMINUM HYDROXIDE. [Concomitant]
     Active Substance: ALUMINUM HYDROXIDE
     Indication: DYSPEPSIA
     Route: 048
     Dates: start: 20170428, end: 20170503
  11. IDASANUTLIN. [Suspect]
     Active Substance: IDASANUTLIN
     Indication: ACUTE MYELOID LEUKAEMIA
     Dosage: MOST RECENT DOSE OF IDASANUTLIN PRIOR TO INTERMITTENT PLATELET COUNT DECREASED ONSET ON 02/MAY/2017
     Route: 048
     Dates: start: 20170428
  12. ACETAMINOPHEN. [Concomitant]
     Active Substance: ACETAMINOPHEN
     Route: 048
     Dates: start: 20170428, end: 20170503
  13. ACYCLOVIR. [Concomitant]
     Active Substance: ACYCLOVIR
     Indication: INFECTION PROPHYLAXIS
     Route: 048
     Dates: start: 20170501
  14. CHLORHEXIDINE [Concomitant]
     Active Substance: CHLORHEXIDINE
     Indication: PROPHYLAXIS
     Route: 048
     Dates: start: 20170428, end: 20170503
  15. LEVOFLOXACIN. [Concomitant]
     Active Substance: LEVOFLOXACIN
     Indication: INFECTION PROPHYLAXIS
     Route: 048
     Dates: start: 20170501
  16. HEPARIN FLUSH [Concomitant]
     Active Substance: HEPARIN SODIUM
     Route: 065
     Dates: start: 20170526

REACTIONS (1)
  - Platelet count decreased [Not Recovered/Not Resolved]

NARRATIVE: CASE EVENT DATE: 20170508
